FAERS Safety Report 9648953 (Version 2)
Quarter: 2014Q1

REPORT INFORMATION
  Report Type: Spontaneous
  Country: US (occurrence: None)
  Receive Date: 20131018
  Receipt Date: 20140122
  Transmission Date: 20141002
  Serious: No
  Sender: FDA-Public Use
  Company Number: AEGR000128

PATIENT
  Age: 72 Year
  Sex: Female
  Weight: 88.4 kg

DRUGS (11)
  1. JUXTAPID [Suspect]
     Indication: TYPE IIA HYPERLIPIDAEMIA
     Dosage: UNK, ORAL
     Route: 048
     Dates: start: 2013, end: 201308
  2. ASPIRIN (ACETYLSALICYLIC ACID) [Concomitant]
  3. FISH OIL (FISH OIL) [Concomitant]
  4. PITAVASTATIN (PITAVASTATIN) [Concomitant]
  5. METOPROLOL (METOPROLOL TARTRATE) [Concomitant]
  6. MICARDIS (TELMISARTAN) [Concomitant]
  7. VITAMIN D (COLECALCIFEROL) [Concomitant]
  8. PLAVIX (COLECALCIFEROL) [Concomitant]
  9. OMEGA 3-6-9 (FISH OIL, TOCOPHEROL) [Concomitant]
  10. E 400 (TOCOPHERYL ACETATE) [Concomitant]
  11. LIVALO (PITAVASTATIN CALCIUM) [Concomitant]

REACTIONS (4)
  - Decreased appetite [None]
  - Alcohol interaction [None]
  - Nausea [None]
  - Somnolence [None]
